FAERS Safety Report 5341034-2 (Version None)
Quarter: 2007Q2

REPORT INFORMATION
  Report Type: 
  Country: None (occurrence: None)
  Receive Date: 20070530
  Receipt Date: 20070425
  Transmission Date: 20071010
  Serious: Yes (Hospitalization)
  Sender: FDA-Public Use
  Company Number: 4757

PATIENT
  Age: 50 Year
  Sex: Female

DRUGS (1)
  1. PRAVASTATIN [Suspect]
     Dates: end: 20070314

REACTIONS (1)
  - PANCREATITIS ACUTE [None]
